FAERS Safety Report 18940133 (Version 1)
Quarter: 2021Q1

REPORT INFORMATION
  Report Type: Spontaneous
  Country: US (occurrence: US)
  Receive Date: 20210224
  Receipt Date: 20210224
  Transmission Date: 20210420
  Serious: Yes (Hospitalization)
  Sender: FDA-Public Use
  Company Number: None

PATIENT
  Age: 72 Year
  Sex: Female
  Weight: 71.8 kg

DRUGS (2)
  1. FASLODEX [Suspect]
     Active Substance: FULVESTRANT
     Dates: end: 20201231
  2. PALBOCICLIB (PD?0332991) [Suspect]
     Active Substance: PALBOCICLIB
     Dates: end: 20210106

REACTIONS (1)
  - Hypertension [None]

NARRATIVE: CASE EVENT DATE: 20210106
